FAERS Safety Report 5474083-4 (Version None)
Quarter: 2007Q4

REPORT INFORMATION
  Report Type: 
  Country: None (occurrence: None)
  Receive Date: 20071002
  Receipt Date: 20070919
  Transmission Date: 20080405
  Serious: Yes (Other)
  Sender: FDA-Public Use
  Company Number: PHNR2007AU01915

PATIENT
  Sex: Female

DRUGS (2)
  1. HMG COA REDUCTASE INHIBITORS [Concomitant]
  2. LETROZOLE [Suspect]
     Indication: BREAST CANCER

REACTIONS (5)
  - ASTHENIA [None]
  - BLOOD CREATINE PHOSPHOKINASE INCREASED [None]
  - FATIGUE [None]
  - LYMPHADENOPATHY [None]
  - MYOPATHY [None]
